FAERS Safety Report 6437740-9 (Version None)
Quarter: 2009Q4

REPORT INFORMATION
  Report Type: 
  Country: None (occurrence: None)
  Receive Date: 20091112
  Receipt Date: 20091031
  Transmission Date: 20100525
  Serious: Yes (Other)
  Sender: FDA-Public Use
  Company Number: US-PFIZER INC-2009293217

PATIENT
  Sex: Female
  Weight: 121 kg

DRUGS (12)
  1. CHANTIX [Suspect]
     Indication: SMOKING CESSATION THERAPY
     Dosage: 0.5 MG, 1X/DAY
     Route: 048
     Dates: start: 20091008
  2. LANTUS [Concomitant]
     Indication: BLOOD GLUCOSE INCREASED
     Dosage: 90 IU, UNK
  3. NOVOLOG [Concomitant]
     Indication: BLOOD GLUCOSE INCREASED
     Dosage: 32 IU, UNK
  4. LASIX [Concomitant]
     Dosage: 40 MG, UNK
  5. PROZAC [Concomitant]
     Indication: NERVOUS SYSTEM DISORDER
     Dosage: 40 MG, UNK
  6. TRIAZOLAM [Concomitant]
     Indication: SLEEP DISORDER
     Dosage: 25 MG, UNK
  7. LORATADINE [Concomitant]
     Indication: HYPERSENSITIVITY
  8. DIOVAN [Concomitant]
     Indication: HYPERTENSION
  9. LIPITOR [Concomitant]
     Dosage: 40 MG, UNK
  10. LYRICA [Concomitant]
     Dosage: 75 MG, 3X/DAY
  11. ACETYLSALICYLIC ACID [Concomitant]
     Dosage: 81 MG, 1X/DAY
  12. ADDERALL 10 [Concomitant]
     Indication: PAIN
     Dosage: UNK

REACTIONS (1)
  - BLOOD GLUCOSE INCREASED [None]
